FAERS Safety Report 13450134 (Version 1)
Quarter: 2017Q2

REPORT INFORMATION
  Report Type: Spontaneous
  Country: US (occurrence: US)
  Receive Date: 20170417
  Receipt Date: 20170417
  Transmission Date: 20170830
  Serious: No
  Sender: FDA-Public Use
  Company Number: US-BION-20160065

PATIENT
  Age: 50 Year
  Sex: Female
  Weight: 86.17 kg

DRUGS (3)
  1. NORVASK (AMLODIPINE) [Concomitant]
  2. LISINOPRIL (LISINOPRIL) [Concomitant]
     Active Substance: LISINOPRIL
  3. ALEVE [Suspect]
     Active Substance: NAPROXEN SODIUM
     Indication: BACK PAIN
     Route: 048

REACTIONS (2)
  - Blood pressure increased [Unknown]
  - Expired product administered [Unknown]
